FAERS Safety Report 14264292 (Version 1)
Quarter: 2017Q4

REPORT INFORMATION
  Report Type: Spontaneous
  Country: US (occurrence: US)
  Receive Date: 20171208
  Receipt Date: 20171208
  Transmission Date: 20180321
  Serious: No
  Sender: FDA-Public Use
  Company Number: US-JAZZ-2017-US-011935

PATIENT
  Age: 15 Year
  Sex: Female

DRUGS (17)
  1. CLARITIN [Concomitant]
     Active Substance: LORATADINE
  2. NUVIGIL [Concomitant]
     Active Substance: ARMODAFINIL
  3. IRON [Concomitant]
     Active Substance: IRON
  4. VITAMIN D3 PLUS [Concomitant]
  5. QVAR [Concomitant]
     Active Substance: BECLOMETHASONE DIPROPIONATE
  6. EFFEXOR [Concomitant]
     Active Substance: VENLAFAXINE HYDROCHLORIDE
  7. VENLAFAXINE HCL [Concomitant]
     Active Substance: VENLAFAXINE HYDROCHLORIDE
  8. XYREM [Suspect]
     Active Substance: SODIUM OXYBATE
     Indication: NARCOLEPSY
  9. NASONEX [Concomitant]
     Active Substance: MOMETASONE FUROATE
  10. FLUOXETINE HCL [Concomitant]
     Active Substance: FLUOXETINE HYDROCHLORIDE
  11. FLOVENT HFA [Concomitant]
     Active Substance: FLUTICASONE PROPIONATE
  12. MEDROL [Concomitant]
     Active Substance: METHYLPREDNISOLONE
  13. MONTELUKAST SODIUM. [Concomitant]
     Active Substance: MONTELUKAST SODIUM
  14. XOPENEX HFA [Concomitant]
     Active Substance: LEVALBUTEROL TARTRATE
  15. PROAIR HFA [Concomitant]
     Active Substance: ALBUTEROL SULFATE
  16. XYREM [Suspect]
     Active Substance: SODIUM OXYBATE
     Indication: CATAPLEXY
     Dosage: 3.75G, BID
     Route: 048
     Dates: start: 201603
  17. ZYRTEC [Concomitant]
     Active Substance: CETIRIZINE HYDROCHLORIDE

REACTIONS (5)
  - Nasal congestion [Not Recovered/Not Resolved]
  - Rhinorrhoea [Not Recovered/Not Resolved]
  - Extra dose administered [Unknown]
  - Oropharyngeal pain [Not Recovered/Not Resolved]
  - Malaise [Unknown]

NARRATIVE: CASE EVENT DATE: 20170908
